FAERS Safety Report 8989089 (Version 1)
Quarter: 2012Q4

REPORT INFORMATION
  Report Type: 
  Country: FR (occurrence: FR)
  Receive Date: 20121228
  Receipt Date: 20121228
  Transmission Date: 20130627
  Serious: Yes (Hospitalization)
  Sender: FDA-Public Use
  Company Number: FR-SANOFI-AVENTIS-2012SA094838

PATIENT
  Age: 9 Year
  Sex: Female

DRUGS (9)
  1. RIFADINE [Suspect]
     Indication: ABSCESS
     Route: 065
     Dates: start: 20121025, end: 20121029
  2. AMIKACIN [Suspect]
     Indication: ABSCESS
     Route: 065
     Dates: start: 20121002, end: 20121004
  3. CODEINE PHOSPHATE [Suspect]
     Indication: PAIN
     Route: 065
     Dates: start: 20120924, end: 20120925
  4. PERFALGAN [Suspect]
     Indication: FEVER
     Route: 042
     Dates: start: 20120924, end: 20120925
  5. COLCHICINE [Suspect]
     Indication: PERICARDITIS
     Route: 065
     Dates: start: 20121002, end: 20121024
  6. DALACIN [Suspect]
     Indication: ABSCESS
     Route: 065
     Dates: start: 20121002, end: 20121024
  7. AUGMENTIN [Suspect]
     Indication: ABSCESS
     Route: 065
     Dates: start: 20121002, end: 20121005
  8. BRISTOPEN [Suspect]
     Indication: ABSCESS
     Route: 065
     Dates: start: 20121005, end: 20121011
  9. ORBENINE [Suspect]
     Indication: ABSCESS
     Route: 065
     Dates: start: 20121011, end: 20121024

REACTIONS (1)
  - Drug reaction with eosinophilia and systemic symptoms [Recovered/Resolved]
